FAERS Safety Report 8810397 (Version 1)
Quarter: 2012Q4

REPORT INFORMATION
  Report Type: 
  Country: US (occurrence: US)
  Receive Date: 20120926
  Receipt Date: 20120926
  Transmission Date: 20130627
  Serious: No
  Sender: FDA-Public Use
  Company Number: US-009507513-1209USA009716

PATIENT
  Sex: Female

DRUGS (4)
  1. PEG-INTRON [Suspect]
     Indication: HEPATITIS C
     Dosage: UNK
     Dates: start: 20120302
  2. REBETOL [Suspect]
     Indication: HEPATITIS C
     Dosage: UNK
     Dates: start: 20120302
  3. LASIX (FUROSEMIDE SODIUM) [Concomitant]
     Indication: ASCITES
  4. SPIRONOLACTONE [Concomitant]
     Indication: ASCITES

REACTIONS (8)
  - Diarrhoea [Unknown]
  - Abdominal pain upper [Unknown]
  - Injection site pain [Unknown]
  - Injection site pruritus [Unknown]
  - Injection site erythema [Unknown]
  - Pyrexia [Unknown]
  - Feeling abnormal [Unknown]
  - Drug ineffective [Unknown]
